FAERS Safety Report 7999013-2 (Version None)
Quarter: 2011Q4

REPORT INFORMATION
  Report Type: 
  Country: None (occurrence: None)
  Receive Date: 20111221
  Receipt Date: 20111209
  Transmission Date: 20120403
  Serious: Yes (Death)
  Sender: FDA-Public Use
  Company Number: US-CELGENEUS-163-21880-11081871

PATIENT
  Sex: Male
  Weight: 89.3 kg

DRUGS (2)
  1. REVLIMID [Suspect]
     Dosage: 25 MILLIGRAM
     Route: 048
     Dates: start: 20101028, end: 20101117
  2. REVLIMID [Suspect]
     Dosage: 25 MILLIGRAM
     Route: 048
     Dates: start: 20101124, end: 20101206

REACTIONS (2)
  - HEPATIC NEOPLASM MALIGNANT [None]
  - NEOPLASM PROGRESSION [None]
